FAERS Safety Report 8430830-0 (Version None)
Quarter: 2012Q2

REPORT INFORMATION
  Report Type: 
  Country: None (occurrence: None)
  Receive Date: 20120612
  Receipt Date: 20120530
  Transmission Date: 20120825
  Serious: No
  Sender: FDA-Public Use
  Company Number: US-ASTRAZENECA-2012SE36209

PATIENT
  Sex: Female

DRUGS (2)
  1. VICODIN [Suspect]
     Route: 065
  2. ZOMIG [Suspect]
     Route: 048

REACTIONS (3)
  - VOMITING [None]
  - HEADACHE [None]
  - DRUG INEFFECTIVE [None]
